FAERS Safety Report 20735698 (Version 1)
Quarter: 2022Q2

REPORT INFORMATION
  Report Type: Spontaneous
  Country: TR (occurrence: TR)
  Receive Date: 20220421
  Receipt Date: 20220421
  Transmission Date: 20220721
  Serious: Yes (Other)
  Sender: FDA-Public Use
  Company Number: TR-UCBSA-2022017366

PATIENT
  Sex: Female

DRUGS (7)
  1. KEPPRA [Suspect]
     Active Substance: LEVETIRACETAM
     Indication: Seizure
     Dosage: UNK
  2. KEPPRA [Suspect]
     Active Substance: LEVETIRACETAM
     Dosage: DOSE INCREASED
  3. CEFTRIAXONE [Concomitant]
     Active Substance: CEFTRIAXONE
     Indication: Encephalitis
  4. ACYCLOVIR [Concomitant]
     Active Substance: ACYCLOVIR
     Indication: Encephalitis
  5. OLANZAPINE [Concomitant]
     Active Substance: OLANZAPINE
     Indication: Encephalitis
  6. METHYLPREDNISOLONE [Concomitant]
     Active Substance: METHYLPREDNISOLONE
     Indication: Product used for unknown indication
  7. VALPROIC ACID [Concomitant]
     Active Substance: VALPROIC ACID
     Indication: Seizure

REACTIONS (2)
  - Premature delivery [Unknown]
  - Maternal exposure during pregnancy [Unknown]
